FAERS Safety Report 4612260-2 (Version None)
Quarter: 2005Q1

REPORT INFORMATION
  Report Type: 
  Country: None (occurrence: None)
  Receive Date: 20050316
  Receipt Date: 20050301
  Transmission Date: 20050727
  Serious: Yes (Death, Hospitalization, Other)
  Sender: FDA-Public Use
  Company Number: USA050392189

PATIENT
  Age: 45 Year
  Sex: Female

DRUGS (2)
  1. ZYPREXA [Suspect]
     Indication: SCHIZOAFFECTIVE DISORDER
     Dosage: 40 MG DAY
  2. XANAX  (ALPRAZOLAM DUM) [Concomitant]

REACTIONS (1)
  - PANCREATITIS [None]
